FAERS Safety Report 8326123-2 (Version None)
Quarter: 2012Q2

REPORT INFORMATION
  Report Type: 
  Country: None (occurrence: None)
  Receive Date: 20120501
  Receipt Date: 20120425
  Transmission Date: 20120825
  Serious: Yes (Hospitalization, Other)
  Sender: FDA-Public Use
  Company Number: US-CELGENEUS-163-21880-12011891

PATIENT
  Sex: Female

DRUGS (3)
  1. REVLIMID [Suspect]
     Indication: MULTIPLE MYELOMA
     Dosage: 25 MILLIGRAM
     Route: 048
     Dates: start: 20111201
  2. REVLIMID [Suspect]
     Dosage: 7.5 MILLIGRAM
     Route: 048
     Dates: start: 20120101
  3. IRON [Concomitant]
     Route: 041

REACTIONS (4)
  - CARDIAC FAILURE CONGESTIVE [None]
  - BLOOD CALCIUM INCREASED [None]
  - DECREASED APPETITE [None]
  - PLATELET COUNT DECREASED [None]
